FAERS Safety Report 10011450 (Version 8)
Quarter: 2014Q4

REPORT INFORMATION
  Report Type: Report from Study
  Country: SI (occurrence: SI)
  Receive Date: 20140314
  Receipt Date: 20141023
  Transmission Date: 20150528
  Serious: Yes (Hospitalization)
  Sender: FDA-Public Use
  Company Number: SI-NOVOPROD-402169

PATIENT
  Age: 64 Year
  Sex: Female
  Weight: 79.3 kg

DRUGS (6)
  1. INSULATARD FLEXPEN HM(GE) [Suspect]
     Active Substance: INSULIN NOS
     Dosage: 30 U, QD
     Route: 058
  2. DIAPREL [Concomitant]
     Active Substance: GLICLAZIDE
     Dosage: 120 MG, QD
     Dates: start: 20120823, end: 20131114
  3. INSULATARD FLEXPEN HM(GE) [Suspect]
     Active Substance: INSULIN NOS
     Indication: TYPE 2 DIABETES MELLITUS
     Dosage: 35 U, QD
     Route: 058
     Dates: start: 20131114
  4. METFORMIN [Concomitant]
     Active Substance: METFORMIN HYDROCHLORIDE
     Indication: TYPE 2 DIABETES MELLITUS
     Dosage: 3 G, QD
     Dates: start: 20020312, end: 20140515
  5. NPH INSULIN [Concomitant]
     Active Substance: INSULIN BEEF
     Indication: TYPE 2 DIABETES MELLITUS
     Dosage: 28 IU, QD
     Dates: start: 20070823, end: 20131113
  6. FIASP 3ML PDS290 [Suspect]
     Active Substance: INVESTIGATIONAL PRODUCT
     Indication: TYPE 2 DIABETES MELLITUS
     Dosage: 21 U, QD
     Route: 058
     Dates: start: 20140110

REACTIONS (3)
  - Injury [None]
  - Hypoglycaemia [Recovering/Resolving]
  - Fall [None]

NARRATIVE: CASE EVENT DATE: 20140228
